FAERS Safety Report 4342770-7 (Version None)
Quarter: 2004Q2

REPORT INFORMATION
  Report Type: 
  Country: None (occurrence: None)
  Receive Date: 20040409
  Receipt Date: 20030729
  Transmission Date: 20050107
  Serious: Yes (Hospitalization)
  Sender: FDA-Public Use
  Company Number: 03P-163-0226946-00

PATIENT
  Age: 16 Year
  Sex: Male
  Weight: 77.1115 kg

DRUGS (2)
  1. DEPAKOTE [Suspect]
     Indication: OBSESSIVE-COMPULSIVE DISORDER
     Dosage: 500 MG, 1 IN 1 D, PER ORAL
     Route: 048
     Dates: start: 19950101, end: 20030729
  2. RISPERIDONE [Concomitant]

REACTIONS (4)
  - INTRANASAL FUNGAL INFECTION [None]
  - NEUTROPENIA [None]
  - PNEUMONIA MYCOPLASMAL [None]
  - WHITE BLOOD CELL COUNT DECREASED [None]
